FAERS Safety Report 9913985 (Version 2)
Quarter: 2014Q1

REPORT INFORMATION
  Report Type: Report from Study
  Country: DE (occurrence: DE)
  Receive Date: 20140220
  Receipt Date: 20140220
  Transmission Date: 20141002
  Serious: Yes (Hospitalization)
  Sender: FDA-Public Use
  Company Number: DE-ABBVIE-13P-062-1126523-00

PATIENT
  Sex: Male

DRUGS (4)
  1. HUMIRA [Suspect]
     Indication: PSORIASIS
     Dosage: MORE THAN 2 WEEKS
     Route: 058
     Dates: start: 20101006, end: 20130509
  2. HUMIRA [Suspect]
     Dosage: MORE THAN 2 WEEKS
     Route: 058
     Dates: start: 201312
  3. FUMARIC ACID [Concomitant]
     Indication: PRODUCT USED FOR UNKNOWN INDICATION
  4. MONO-EMBOLEX [Concomitant]
     Indication: PRODUCT USED FOR UNKNOWN INDICATION

REACTIONS (1)
  - Gastrointestinal carcinoma [Recovering/Resolving]
